FAERS Safety Report 23809858 (Version 3)
Quarter: 2024Q3

REPORT INFORMATION
  Report Type: Report from Study
  Country: US (occurrence: US)
  Receive Date: 20240502
  Receipt Date: 20240717
  Transmission Date: 20241017
  Serious: Yes (Hospitalization, Other)
  Sender: JAZZ
  Company Number: US-JAZZ PHARMACEUTICALS-2024-US-006834

PATIENT
  Sex: Male
  Weight: 16.508 kg

DRUGS (3)
  1. EPIDIOLEX [Suspect]
     Active Substance: CANNABIDIOL
     Indication: Epilepsy
     Dosage: 2.2 MILLILITER, BID
     Route: 048
     Dates: start: 202404
  2. EPIDIOLEX [Suspect]
     Active Substance: CANNABIDIOL
     Indication: Tuberous sclerosis complex
     Dosage: 25MG/KG/DAY
     Route: 048
  3. EPIDIOLEX [Suspect]
     Active Substance: CANNABIDIOL
     Dosage: 2.2 MILLILITER, BID, 26.65MG/KG/DAY
     Route: 048
     Dates: start: 20220613

REACTIONS (5)
  - Hospitalisation [Unknown]
  - Seizure [Not Recovered/Not Resolved]
  - Seizure [Unknown]
  - Emergency care [Unknown]
  - Drug effect less than expected [Not Recovered/Not Resolved]
